FAERS Safety Report 9540626 (Version 1)
Quarter: 2013Q3

REPORT INFORMATION
  Report Type: Spontaneous
  Country: AU (occurrence: AU)
  Receive Date: 20130920
  Receipt Date: 20130920
  Transmission Date: 20140515
  Serious: Yes (Other)
  Sender: FDA-Public Use
  Company Number: PHHY2013AU102838

PATIENT
  Sex: 0

DRUGS (4)
  1. PROPRANOLOL [Suspect]
     Indication: HAEMANGIOMA
     Dosage: 0.5 MG/KG, BID
  2. PROPRANOLOL [Suspect]
     Dosage: 0.25 MG/KG, UNK
  3. PROPRANOLOL [Suspect]
     Dosage: 0.25 MG/KG, BID
  4. PROPRANOLOL [Suspect]
     Dosage: 0.5 MG/KG, BID

REACTIONS (3)
  - Apnoea [Recovered/Resolved]
  - Hypotonia [Recovered/Resolved]
  - Heart rate decreased [Recovered/Resolved]
